FAERS Safety Report 7260660-7 (Version None)
Quarter: 2011Q1

REPORT INFORMATION
  Report Type: 
  Country: None (occurrence: None)
  Receive Date: 20110130
  Receipt Date: 20101119
  Transmission Date: 20110831
  Serious: No
  Sender: FDA-Public Use
  Company Number: US-ABBOTT-10P-163-0686991-00

PATIENT
  Age: 26 Year
  Sex: Female

DRUGS (5)
  1. FE [Concomitant]
     Indication: ANAEMIA
  2. ALBUTEROL [Concomitant]
     Indication: ASTHMA
  3. HUMIRA [Suspect]
     Indication: CROHN'S DISEASE
     Dates: start: 20100801, end: 20101017
  4. PREDNISONE [Concomitant]
     Indication: PRODUCT USED FOR UNKNOWN INDICATION
  5. TYLENOL-500 [Concomitant]
     Indication: PAIN

REACTIONS (1)
  - VAGINAL HAEMORRHAGE [None]
